FAERS Safety Report 8050680-7 (Version None)
Quarter: 2012Q1

REPORT INFORMATION
  Report Type: 
  Country: None (occurrence: None)
  Receive Date: 20120117
  Receipt Date: 20120117
  Transmission Date: 20120608
  Serious: Yes (Other)
  Sender: FDA-Public Use
  Company Number: None

PATIENT
  Age: 18 Year
  Sex: Female
  Weight: 63.502 kg

DRUGS (1)
  1. CHORIONIC GONADOTROPIN [Suspect]
     Indication: WEIGHT DECREASED
     Dosage: 5 DROPS
     Route: 060
     Dates: start: 20120101, end: 20120131

REACTIONS (1)
  - DRUG INEFFECTIVE [None]
